FAERS Safety Report 20973145 (Version 3)
Quarter: 2022Q3

REPORT INFORMATION
  Report Type: Spontaneous
  Country: ES (occurrence: None)
  Receive Date: 20220617
  Receipt Date: 20220726
  Transmission Date: 20221026
  Serious: Yes (Other)
  Sender: FDA-Public Use
  Company Number: 2022A220651

PATIENT
  Age: 81 Year
  Sex: Female

DRUGS (1)
  1. ACALABRUTINIB [Suspect]
     Active Substance: ACALABRUTINIB
     Indication: Drug therapy
     Route: 048
     Dates: start: 20220513, end: 2022

REACTIONS (6)
  - Haemorrhagic diathesis [Unknown]
  - Petechiae [Unknown]
  - Haematoma [Unknown]
  - Pneumonia [Unknown]
  - White blood cell count decreased [Unknown]
  - Herpes zoster [Unknown]

NARRATIVE: CASE EVENT DATE: 20220601
